FAERS Safety Report 11149701 (Version 2)
Quarter: 2015Q3

REPORT INFORMATION
  Report Type: Spontaneous
  Country: BR (occurrence: BR)
  Receive Date: 20150529
  Receipt Date: 20150708
  Transmission Date: 20151125
  Serious: Yes (Other)
  Sender: FDA-Public Use
  Company Number: BR-ASTRAZENECA-2015SE50682

PATIENT
  Age: 55 Year
  Sex: Male

DRUGS (4)
  1. PONDERA [Concomitant]
     Active Substance: PAROXETINE HYDROCHLORIDE
     Indication: PARKINSON^S DISEASE
     Route: 048
     Dates: start: 2014
  2. SYMBICORT [Suspect]
     Active Substance: BUDESONIDE\FORMOTEROL FUMARATE DIHYDRATE
     Indication: BRONCHITIS
     Dosage: ALENIA 400/12 MCG, 1 INHALATION/BID
     Route: 055
     Dates: end: 2015
  3. SEVERAL UNSPECIFIED CONCOMITANT DRUGS [Concomitant]
  4. SYMBICORT [Suspect]
     Active Substance: BUDESONIDE\FORMOTEROL FUMARATE DIHYDRATE
     Indication: BRONCHITIS
     Dosage: 320/9 MCG, 1 INHALATION/BID
     Route: 055
     Dates: start: 2015

REACTIONS (4)
  - Parkinson^s disease [Recovered/Resolved]
  - Product use issue [Not Recovered/Not Resolved]
  - Increased bronchial secretion [Recovered/Resolved]
  - Off label use [Not Recovered/Not Resolved]

NARRATIVE: CASE EVENT DATE: 2013
